FAERS Safety Report 18479562 (Version 1)
Quarter: 2020Q4

REPORT INFORMATION
  Report Type: Spontaneous
  Country: US (occurrence: US)
  Receive Date: 20201106
  Receipt Date: 20201106
  Transmission Date: 20210114
  Serious: Yes (Other)
  Sender: FDA-Public Use
  Company Number: None

PATIENT
  Age: 49 Year
  Sex: Female
  Weight: 73.48 kg

DRUGS (1)
  1. GLATOPA [Suspect]
     Active Substance: GLATIRAMER ACETATE
     Indication: MULTIPLE SCLEROSIS
     Route: 058
     Dates: start: 20191030, end: 20201105

REACTIONS (4)
  - Product substitution issue [None]
  - Economic problem [None]
  - Disease progression [None]
  - Therapeutic response changed [None]

NARRATIVE: CASE EVENT DATE: 20201104
